FAERS Safety Report 6434343-7 (Version None)
Quarter: 2009Q4

REPORT INFORMATION
  Report Type: 
  Country: None (occurrence: None)
  Receive Date: 20091110
  Receipt Date: 20080919
  Transmission Date: 20100525
  Serious: No
  Sender: FDA-Public Use
  Company Number: US-ASTRAZENECA-2009UW14312

PATIENT
  Age: 67 Year
  Sex: Male

DRUGS (4)
  1. PRILOSEC OTC [Suspect]
     Indication: DYSPEPSIA
     Route: 048
     Dates: start: 20060919, end: 20080918
  2. PRILOSEC OTC [Suspect]
     Route: 048
     Dates: start: 20060919, end: 20080918
  3. PRILOSEC OTC [Suspect]
  4. PRILOSEC OTC [Suspect]

REACTIONS (2)
  - DRUG INEFFECTIVE [None]
  - INCORRECT DRUG ADMINISTRATION DURATION [None]
